FAERS Safety Report 9943687 (Version 1)
Quarter: 2014Q1

REPORT INFORMATION
  Report Type: Report from Study
  Country: US (occurrence: US)
  Receive Date: 20140303
  Receipt Date: 20140303
  Transmission Date: 20141002
  Serious: No
  Sender: FDA-Public Use
  Company Number: US-ABBVIE-13P-163-1047794-00

PATIENT
  Age: 61 Year
  Sex: Female

DRUGS (9)
  1. HUMIRA [Suspect]
     Indication: CROHN^S DISEASE
     Dates: start: 20121206
  2. IMURAN [Concomitant]
     Indication: CROHN^S DISEASE
  3. WELLBUTRIN [Concomitant]
     Indication: DEPRESSION
  4. TRAZODONE [Concomitant]
     Indication: PAIN
  5. GEMFIBROZIL [Concomitant]
     Indication: BLOOD CHOLESTEROL
  6. SIMVASTATIN [Concomitant]
     Indication: BLOOD CHOLESTEROL
  7. COZAAR [Concomitant]
     Indication: HYPERTENSION
  8. ELMIRON [Concomitant]
     Indication: CYSTITIS INTERSTITIAL
  9. PREMARIN [Concomitant]
     Indication: PRODUCT USED FOR UNKNOWN INDICATION

REACTIONS (2)
  - Abdominal pain [Not Recovered/Not Resolved]
  - Diarrhoea [Not Recovered/Not Resolved]
